FAERS Safety Report 11249988 (Version 1)
Quarter: 2015Q3

REPORT INFORMATION
  Report Type: Spontaneous
  Country: US (occurrence: US)
  Receive Date: 20150708
  Receipt Date: 20150708
  Transmission Date: 20151125
  Serious: No
  Sender: FDA-Public Use
  Company Number: US-ELI_LILLY_AND_COMPANY-US201006000338

PATIENT
  Sex: Female

DRUGS (1)
  1. SYMBYAX [Suspect]
     Active Substance: FLUOXETINE HYDROCHLORIDE\OLANZAPINE
     Indication: DEPRESSION
     Dosage: 1 D/F, DAILY (1/D)

REACTIONS (7)
  - Dysphonia [Not Recovered/Not Resolved]
  - Sinusitis [Not Recovered/Not Resolved]
  - Excessive cerumen production [Unknown]
  - Sneezing [Unknown]
  - Feeling abnormal [Unknown]
  - Hypersensitivity [Not Recovered/Not Resolved]
  - Dry throat [Not Recovered/Not Resolved]
